FAERS Safety Report 6938144-2 (Version None)
Quarter: 2010Q3

REPORT INFORMATION
  Report Type: 
  Country: None (occurrence: None)
  Receive Date: 20100824
  Receipt Date: 20100809
  Transmission Date: 20110219
  Serious: Yes (Hospitalization)
  Sender: FDA-Public Use
  Company Number: PHHO2010GB12079

PATIENT
  Sex: Female
  Weight: 67.5 kg

DRUGS (5)
  1. AFINITOR [Suspect]
     Indication: BREAST CANCER METASTATIC
     Dosage: CODE NOT BROKEN
     Route: 048
     Dates: start: 20100802
  2. BLINDED NO TREATMENT RECEIVED NOMED [Suspect]
     Indication: BREAST CANCER METASTATIC
     Dosage: CODE NOT BROKEN
     Route: 048
     Dates: start: 20100802
  3. BLINDED PLACEBO COMP-PLA+ [Suspect]
     Indication: BREAST CANCER METASTATIC
     Dosage: CODE NOT BROKEN
     Route: 048
     Dates: start: 20100802
  4. COMPARATOR VINORELBINE [Suspect]
     Indication: BREAST CANCER METASTATIC
     Dosage: 44MG
     Route: 042
     Dates: start: 20100802
  5. COMPARATOR TRASTUZUMAB [Suspect]
     Indication: BREAST CANCER METASTATIC
     Dosage: 270MG
     Route: 042
     Dates: start: 20100802

REACTIONS (4)
  - ABDOMINAL PAIN [None]
  - HAEMATEMESIS [None]
  - MUCOSAL INFLAMMATION [None]
  - NEUTROPENIA [None]
